FAERS Safety Report 18265045 (Version 2)
Quarter: 2020Q4

REPORT INFORMATION
  Report Type: Spontaneous
  Country: US (occurrence: US)
  Receive Date: 20200914
  Receipt Date: 20201005
  Transmission Date: 20210113
  Serious: No
  Sender: FDA-Public Use
  Company Number: NVSC2020US250464

PATIENT
  Sex: Male

DRUGS (2)
  1. PREDNISOLONE. [Concomitant]
     Active Substance: PREDNISOLONE
     Indication: PRODUCT USED FOR UNKNOWN INDICATION
     Dosage: UNK
     Route: 065
  2. ZOLGENSMA [Suspect]
     Active Substance: ONASEMNOGENE ABEPARVOVEC-XIOI
     Dosage: UNK, ONCE/SINGLE
     Route: 042
     Dates: start: 20200826, end: 20200826

REACTIONS (7)
  - Liver function test increased [Unknown]
  - Productive cough [Unknown]
  - Nasal congestion [Unknown]
  - Full blood count increased [Unknown]
  - Infrequent bowel movements [Unknown]
  - Flatulence [Unknown]
  - Vomiting [Unknown]
